FAERS Safety Report 21929199 (Version 1)
Quarter: 2023Q1

REPORT INFORMATION
  Report Type: Spontaneous
  Country: US (occurrence: US)
  Receive Date: 20230131
  Receipt Date: 20230131
  Transmission Date: 20230418
  Serious: No
  Sender: FDA-Public Use
  Company Number: US-drreddys-SPO/USA/23/0159690

PATIENT
  Age: 67 Year
  Sex: Male

DRUGS (5)
  1. LENALIDOMIDE [Suspect]
     Active Substance: LENALIDOMIDE
     Indication: Plasma cell myeloma in remission
     Dosage: TAKE 1 CAPSULE BY MOUTH EVERY DAY FOR 21 DAYS THEN OFF 7 DAYS
     Route: 048
     Dates: start: 20220412
  2. XGEVA [Suspect]
     Active Substance: DENOSUMAB
     Indication: Product used for unknown indication
  3. ALLEGRA ALLE TAB 180MG [Concomitant]
     Indication: Product used for unknown indication
  4. ASPIRIN TBE 81MG [Concomitant]
     Indication: Product used for unknown indication
  5. POTASSIUM CI TBC 10 MEQ(1 [Concomitant]
     Indication: Product used for unknown indication
     Dosage: 10 MEQ(1

REACTIONS (1)
  - Dental caries [Not Recovered/Not Resolved]
